FAERS Safety Report 5722888-4 (Version None)
Quarter: 2008Q2

REPORT INFORMATION
  Report Type: 
  Country: None (occurrence: None)
  Receive Date: 20080425
  Receipt Date: 20080405
  Transmission Date: 20081010
  Serious: Yes (Other)
  Sender: FDA-Public Use
  Company Number: DSU-2007-00543

PATIENT
  Age: 55 Year
  Sex: Male
  Weight: 51.2565 kg

DRUGS (4)
  1. FLOXIN OTIC [Suspect]
     Indication: PROPHYLAXIS
     Dosage: 3-5 DROPS (BID X 3 DAYS), AURICULAR (OTIC)
     Route: 001
     Dates: start: 20070816, end: 20070818
  2. PREDNISONE TAB [Concomitant]
  3. VALTREX (VALACICLOVIR HYDROCHLORIDE) (TABLET) (VALACICLOVIR HDYROCHLOR [Concomitant]
  4. DEPAKOTE (VALPROATE SODIUM) (500 MILLIGRAM, TABLET) (VALPROATE SODIUM) [Concomitant]

REACTIONS (5)
  - EUSTACHIAN TUBE OBSTRUCTION [None]
  - HYPOACUSIS [None]
  - NERVOUS SYSTEM DISORDER [None]
  - NO THERAPEUTIC RESPONSE [None]
  - POST PROCEDURAL COMPLICATION [None]
